FAERS Safety Report 7284218-9 (Version None)
Quarter: 2011Q1

REPORT INFORMATION
  Report Type: 
  Country: None (occurrence: None)
  Receive Date: 20110209
  Receipt Date: 20110203
  Transmission Date: 20110831
  Serious: No
  Sender: FDA-Public Use
  Company Number: US-PFIZER INC-2011025211

PATIENT
  Sex: Male

DRUGS (1)
  1. ZYVOX [Suspect]
     Indication: SKIN INFECTION
     Dosage: FROM 600MG TO 1200MG

REACTIONS (1)
  - DRUG LEVEL DECREASED [None]
